FAERS Safety Report 8592636-1 (Version None)
Quarter: 2012Q3

REPORT INFORMATION
  Report Type: 
  Country: None (occurrence: None)
  Receive Date: 20120814
  Receipt Date: 20120802
  Transmission Date: 20120928
  Serious: Yes (Disabling)
  Sender: FDA-Public Use
  Company Number: GB-TEVA-352336ISR

PATIENT
  Age: 64 Year
  Sex: Female
  Weight: 99.33 kg

DRUGS (5)
  1. BUMETANIDE [Suspect]
     Indication: FLUID RETENTION
     Route: 048
  2. OMEPRAZOLE [Concomitant]
  3. FLECAINIDE ACETATE [Concomitant]
  4. LEVOTHYROXINE SODIUM [Concomitant]
  5. BISOPROLOL [Concomitant]

REACTIONS (1)
  - ATRIAL FIBRILLATION [None]
